FAERS Safety Report 4967330-6 (Version None)
Quarter: 2006Q2

REPORT INFORMATION
  Report Type: 
  Country: None (occurrence: None)
  Receive Date: 20060410
  Receipt Date: 20060328
  Transmission Date: 20061013
  Serious: Yes (Hospitalization, Other)
  Sender: FDA-Public Use
  Company Number: PHBS2006JP04855

PATIENT
  Age: 79 Year
  Sex: Female
  Weight: 48 kg

DRUGS (5)
  1. NEORAL [Suspect]
     Indication: APLASTIC ANAEMIA
     Dosage: 250 MG/D
     Route: 048
     Dates: start: 20050128
  2. PARIET [Concomitant]
     Route: 048
     Dates: start: 20050128
  3. PREDNISOLONE [Concomitant]
     Dosage: 20 MG/D
     Route: 048
     Dates: start: 20050128
  4. KREMEZIN [Concomitant]
     Dosage: 6 G/D
     Route: 065
  5. LASIX [Concomitant]
     Dosage: 10 MG/D
     Route: 065

REACTIONS (5)
  - APLASTIC ANAEMIA [None]
  - BLOOD CREATININE INCREASED [None]
  - CREATININE RENAL CLEARANCE DECREASED [None]
  - RENAL FAILURE CHRONIC [None]
  - URINE OUTPUT DECREASED [None]
